FAERS Safety Report 9714150 (Version 1)
Quarter: 2013Q4

REPORT INFORMATION
  Report Type: Spontaneous
  Country: US (occurrence: US)
  Receive Date: 20131126
  Receipt Date: 20131126
  Transmission Date: 20140711
  Serious: No
  Sender: FDA-Public Use
  Company Number: US-GILEAD-2008-0019075

PATIENT
  Sex: Male
  Weight: 81.19 kg

DRUGS (6)
  1. LETAIRIS [Suspect]
     Route: 048
     Dates: start: 20081028
  2. COUMADIN [Concomitant]
  3. ALTACE [Concomitant]
  4. DIGOXIN [Concomitant]
  5. COREG [Concomitant]
  6. MULTIVITAMIN [Concomitant]

REACTIONS (1)
  - Dyspnoea [None]
